FAERS Safety Report 7440689-6 (Version None)
Quarter: 2011Q2

REPORT INFORMATION
  Report Type: 
  Country: None (occurrence: None)
  Receive Date: 20110427
  Receipt Date: 20110413
  Transmission Date: 20111010
  Serious: Yes (Hospitalization)
  Sender: FDA-Public Use
  Company Number: GR-GENENTECH-317154

PATIENT
  Age: 65 Year
  Sex: Male

DRUGS (8)
  1. INSULIN [Concomitant]
     Indication: PRODUCT USED FOR UNKNOWN INDICATION
  2. ANTIHYPERTENSIVES [Concomitant]
     Indication: PRODUCT USED FOR UNKNOWN INDICATION
  3. LUCENTIS [Suspect]
     Indication: MACULAR DEGENERATION
     Dosage: UNK
     Route: 031
     Dates: start: 20100901
  4. LUCENTIS [Suspect]
     Route: 031
  5. LUCENTIS [Suspect]
     Dosage: UNK
     Route: 031
     Dates: start: 20101001
  6. LUCENTIS [Suspect]
     Dosage: UNK
     Route: 031
     Dates: start: 20110223
  7. LUCENTIS [Suspect]
     Route: 031
  8. LUCENTIS [Suspect]
     Dosage: UNK
     Route: 031
     Dates: start: 20101101

REACTIONS (2)
  - ANGINA PECTORIS [None]
  - MACULAR DEGENERATION [None]
